FAERS Safety Report 12902812 (Version 1)
Quarter: 2016Q4

REPORT INFORMATION
  Report Type: Spontaneous
  Country: US (occurrence: US)
  Receive Date: 20161102
  Receipt Date: 20161102
  Transmission Date: 20170207
  Serious: No
  Sender: FDA-Public Use
  Company Number: US-JNJFOC-20160827150

PATIENT
  Age: 52 Year
  Sex: Female
  Weight: 54.43 kg

DRUGS (2)
  1. IMODIUM A-D [Suspect]
     Active Substance: LOPERAMIDE HYDROCHLORIDE
     Indication: ABDOMINAL DISCOMFORT
     Dosage: DOSE: LESS THAN 15 ML; INTERVAL: 1X
     Route: 048
     Dates: start: 20160827, end: 20160827
  2. IMODIUM A-D [Suspect]
     Active Substance: LOPERAMIDE HYDROCHLORIDE
     Indication: ANTIDIARRHOEAL SUPPORTIVE CARE
     Dosage: DOSE: LESS THAN 15 ML; INTERVAL: 1X
     Route: 048
     Dates: start: 20160827, end: 20160827

REACTIONS (1)
  - Condition aggravated [Recovering/Resolving]

NARRATIVE: CASE EVENT DATE: 20160827
